FAERS Safety Report 9834103 (Version 1)
Quarter: 2014Q1

REPORT INFORMATION
  Report Type: Spontaneous
  Country: US (occurrence: US)
  Receive Date: 20140122
  Receipt Date: 20140122
  Transmission Date: 20141002
  Serious: Yes (Hospitalization)
  Sender: FDA-Public Use
  Company Number: US-BAYER-2014-009610

PATIENT
  Age: 17 Year
  Sex: Female
  Weight: 88.44 kg

DRUGS (8)
  1. YAZ [Suspect]
  2. TAGAMET [Concomitant]
     Dosage: UNK
     Dates: start: 20010223
  3. INDOMETHACIN [Concomitant]
     Dosage: UNK
     Dates: start: 20010329
  4. CHOLESTYRAMINE [Concomitant]
  5. TUMS [CALCIUM CARBONATE] [Concomitant]
  6. PHENERGAN [Concomitant]
  7. PREVACID [Concomitant]
  8. HEPARIN [Concomitant]
     Indication: MESENTERIC VEIN THROMBOSIS

REACTIONS (3)
  - Mesenteric vein thrombosis [None]
  - Portal vein thrombosis [None]
  - Intestinal infarction [None]
